FAERS Safety Report 18099540 (Version 1)
Quarter: 2020Q3

REPORT INFORMATION
  Report Type: Report from Study
  Country: US (occurrence: US)
  Receive Date: 20200731
  Receipt Date: 20200731
  Transmission Date: 20201103
  Serious: Yes (Hospitalization)
  Sender: FDA-Public Use
  Company Number: US-MYLANLABS-2020M1068972

PATIENT
  Sex: Female

DRUGS (16)
  1. CIDOFOVIR. [Suspect]
     Active Substance: CIDOFOVIR
     Indication: ADENOVIRUS INFECTION
  2. HYDROCORTISONE. [Suspect]
     Active Substance: HYDROCORTISONE
     Indication: SEPTIC SHOCK
     Route: 065
  3. PLASMA [Concomitant]
     Active Substance: HUMAN PLASMA
     Indication: ADENOVIRUS INFECTION
  4. AMPICILLIN [Suspect]
     Active Substance: AMPICILLIN
     Indication: ADENOVIRUS INFECTION
  5. CIDOFOVIR. [Suspect]
     Active Substance: CIDOFOVIR
     Indication: SEPTIC SHOCK
     Route: 065
  6. DOPAMINE [Suspect]
     Active Substance: DOPAMINE HYDROCHLORIDE
     Indication: SEPTIC SHOCK
     Route: 065
  7. CALCIUM CHLORIDE. [Concomitant]
     Active Substance: CALCIUM CHLORIDE
     Indication: PROPHYLAXIS
     Route: 065
  8. HYDROCORTISONE. [Suspect]
     Active Substance: HYDROCORTISONE
     Indication: ADENOVIRUS INFECTION
  9. CEFEPIME [Suspect]
     Active Substance: CEFEPIME HYDROCHLORIDE
     Indication: SEPTIC SHOCK
     Route: 065
  10. DOPAMINE [Suspect]
     Active Substance: DOPAMINE HYDROCHLORIDE
     Indication: ADENOVIRUS INFECTION
  11. FLUCONAZOLE. [Suspect]
     Active Substance: FLUCONAZOLE
     Indication: ADENOVIRUS INFECTION
  12. PLASMA [Concomitant]
     Active Substance: HUMAN PLASMA
     Indication: MULTIPLE ORGAN DYSFUNCTION SYNDROME
  13. FLUCONAZOLE. [Suspect]
     Active Substance: FLUCONAZOLE
     Indication: SEPTIC SHOCK
     Route: 065
  14. CEFEPIME [Suspect]
     Active Substance: CEFEPIME HYDROCHLORIDE
     Indication: ADENOVIRUS INFECTION
  15. PLASMA [Concomitant]
     Active Substance: HUMAN PLASMA
     Indication: SEPTIC SHOCK
     Route: 065
  16. AMPICILLIN [Suspect]
     Active Substance: AMPICILLIN
     Indication: SEPTIC SHOCK
     Route: 065

REACTIONS (2)
  - Off label use [Unknown]
  - Drug ineffective [Unknown]
